FAERS Safety Report 15316639 (Version 1)
Quarter: 2018Q3

REPORT INFORMATION
  Report Type: Spontaneous
  Country: JP (occurrence: JP)
  Receive Date: 20180824
  Receipt Date: 20180824
  Transmission Date: 20181010
  Serious: Yes (Other)
  Sender: FDA-Public Use
  Company Number: JP-PFIZER INC-2018335060

PATIENT
  Age: 44 Year
  Sex: Female

DRUGS (3)
  1. HALCION [Suspect]
     Active Substance: TRIAZOLAM
     Dosage: UNK
     Dates: start: 20180712, end: 20180712
  2. HALCION [Suspect]
     Active Substance: TRIAZOLAM
     Dosage: UNK
     Dates: start: 20180713, end: 20180713
  3. HALCION [Suspect]
     Active Substance: TRIAZOLAM
     Dosage: UNK
     Dates: start: 20180716, end: 20180716

REACTIONS (2)
  - Paralysis [Not Recovered/Not Resolved]
  - Movement disorder [Not Recovered/Not Resolved]

NARRATIVE: CASE EVENT DATE: 20180717
